FAERS Safety Report 9949382 (Version 1)
Quarter: 2014Q1

REPORT INFORMATION
  Report Type: Spontaneous
  Country: US (occurrence: US)
  Receive Date: 20140304
  Receipt Date: 20140304
  Transmission Date: 20141002
  Serious: No
  Sender: FDA-Public Use
  Company Number: US-PFIZER INC-2014059131

PATIENT
  Age: 81 Year
  Sex: Female
  Weight: 72.11 kg

DRUGS (1)
  1. PREMARIN [Suspect]
     Indication: MENOPAUSAL SYMPTOMS
     Dosage: 0.625 MG, 1X/DAY
     Dates: end: 201402

REACTIONS (3)
  - Headache [Recovering/Resolving]
  - Nervousness [Unknown]
  - Intentional drug misuse [Unknown]
